FAERS Safety Report 8955174 (Version 2)
Quarter: 2012Q4

REPORT INFORMATION
  Report Type: 
  Country: US (occurrence: US)
  Receive Date: 20121210
  Receipt Date: 20121228
  Transmission Date: 20130627
  Serious: Yes (Hospitalization)
  Sender: FDA-Public Use
  Company Number: US-BIOGENIDEC-2012BI056998

PATIENT
  Sex: Male

DRUGS (1)
  1. AVONEX [Suspect]
     Indication: MULTIPLE SCLEROSIS
     Route: 030
     Dates: start: 19960801

REACTIONS (10)
  - Carpal tunnel syndrome [Recovered/Resolved]
  - Arthritis [Recovered/Resolved]
  - Hearing impaired [Unknown]
  - Atrophy [Unknown]
  - Multiple sclerosis [Unknown]
  - Gait disturbance [Unknown]
  - General symptom [Unknown]
  - Depressed mood [Unknown]
  - Anxiety [Unknown]
  - Muscular weakness [Unknown]
